FAERS Safety Report 15294987 (Version 1)
Quarter: 2018Q3

REPORT INFORMATION
  Report Type: Spontaneous
  Country: US (occurrence: US)
  Receive Date: 20180807
  Receipt Date: 20180807
  Transmission Date: 20181010
  Serious: No
  Sender: FDA-Public Use
  Company Number: None

PATIENT
  Age: 40 Year
  Sex: Female
  Weight: 71.1 kg

DRUGS (5)
  1. TYLENOL [Concomitant]
     Active Substance: ACETAMINOPHEN
  2. SOMA [Concomitant]
     Active Substance: CARISOPRODOL
  3. BELBUCA [Suspect]
     Active Substance: BUPRENORPHINE HYDROCHLORIDE
     Indication: NECK PAIN
     Dosage: ?          QUANTITY:90 PATCH(ES);OTHER ROUTE:SUBLINGUAL?
     Route: 060
     Dates: start: 20180703, end: 20180806
  4. PERCOCET [Concomitant]
     Active Substance: ACETAMINOPHEN\OXYCODONE HYDROCHLORIDE
  5. CLONIDINE. [Concomitant]
     Active Substance: CLONIDINE

REACTIONS (4)
  - Jaw disorder [None]
  - Neck pain [None]
  - Pain in jaw [None]
  - Choking sensation [None]

NARRATIVE: CASE EVENT DATE: 20180723
